FAERS Safety Report 6681547-4 (Version None)
Quarter: 2010Q2

REPORT INFORMATION
  Report Type: 
  Country: None (occurrence: None)
  Receive Date: 20100414
  Receipt Date: 20100409
  Transmission Date: 20101027
  Serious: Yes (Life-Threatening, Hospitalization, Other)
  Sender: FDA-Public Use
  Company Number: PHHY2010DE05207

PATIENT
  Age: 70 Year
  Sex: Female
  Weight: 70 kg

DRUGS (15)
  1. DICLOFENAC [Suspect]
     Indication: PAIN
     Dosage: 50 MG, QD
     Route: 048
     Dates: end: 20090803
  2. ENEAS [Suspect]
     Indication: HYPERTENSION
     Dosage: 1 DF, QD
     Route: 048
     Dates: end: 20090803
  3. ENALAPRIL MALEATE [Suspect]
     Indication: HYPERTENSION
     Dosage: 10 MG, QD
     Route: 048
     Dates: end: 20090803
  4. TORSEMIDE [Suspect]
     Indication: HYPERTENSION
     Dosage: 10 MG, QD
     Route: 048
     Dates: end: 20090804
  5. BISOPROLOL FUMARATE AND HYDROCHLOROTHIAZIDE [Suspect]
     Indication: HYPERTENSION
     Dosage: 1 DF, QD
     Route: 048
     Dates: end: 20090803
  6. SPIRONOLACTONE [Suspect]
     Indication: HYPERTENSION
     Dosage: 25 MG, QD
     Route: 048
     Dates: end: 20090803
  7. DOXAZOSIN [Suspect]
     Indication: HYPERTENSION
     Dosage: 4 MG, QD
     Route: 048
  8. VENLAFAXINE HCL [Suspect]
     Dosage: 37.5 MG, BID
     Route: 048
     Dates: end: 20090803
  9. DIGITOXIN TAB [Concomitant]
     Dosage: 0.07 MG, UNK
     Route: 048
  10. METFORMIN HCL [Concomitant]
     Indication: TYPE 2 DIABETES MELLITUS
     Dosage: 1000 MG, BID
     Route: 048
     Dates: end: 20090802
  11. XALATAN [Concomitant]
     Indication: GLAUCOMA
     Dosage: 1.5 UG, QD
     Route: 057
  12. ACTRAPID INSULIN NOVO [Concomitant]
     Indication: TYPE 2 DIABETES MELLITUS
     Route: 058
  13. LANTUS [Concomitant]
     Indication: TYPE 2 DIABETES MELLITUS
     Dosage: 64 IU, UNK
     Route: 058
  14. ACETYLSALICYLIC ACID [Concomitant]
     Indication: ISCHAEMIC HEART DISEASE PROPHYLAXIS
     Dosage: 100 MG, QD
     Route: 048
     Dates: end: 20090805
  15. NIASPAN [Concomitant]
     Indication: HYPERLIPIDAEMIA
     Dosage: 1500 MG, QD
     Route: 048

REACTIONS (13)
  - BICYTOPENIA [None]
  - BILIRUBIN CONJUGATED INCREASED [None]
  - BLOOD LACTATE DEHYDROGENASE INCREASED [None]
  - DEHYDRATION [None]
  - DIARRHOEA [None]
  - ERYTHROPENIA [None]
  - GASTROENTERITIS [None]
  - GLYCOSYLATED HAEMOGLOBIN INCREASED [None]
  - NAUSEA [None]
  - PLATELET COUNT DECREASED [None]
  - RENAL FAILURE ACUTE [None]
  - THROMBOCYTOPENIA [None]
  - VOMITING [None]
